FAERS Safety Report 7560593-2 (Version None)
Quarter: 2011Q2

REPORT INFORMATION
  Report Type: 
  Country: None (occurrence: None)
  Receive Date: 20110621
  Receipt Date: 20101012
  Transmission Date: 20111010
  Serious: No
  Sender: FDA-Public Use
  Company Number: US-ASTRAZENECA-2010SE48220

PATIENT
  Sex: Female

DRUGS (4)
  1. ENTOCORT EC [Suspect]
     Route: 048
  2. ENTOCORT EC [Suspect]
     Indication: COLITIS COLLAGENOUS
     Route: 048
  3. ENTOCORT EC [Suspect]
     Route: 048
  4. ENTOCORT EC [Suspect]
     Route: 048

REACTIONS (2)
  - DECREASED IMMUNE RESPONSIVENESS [None]
  - NASOPHARYNGITIS [None]
